FAERS Safety Report 6401430-9 (Version None)
Quarter: 2009Q4

REPORT INFORMATION
  Report Type: 
  Country: None (occurrence: None)
  Receive Date: 20091015
  Receipt Date: 20091008
  Transmission Date: 20100525
  Serious: Yes (Other)
  Sender: FDA-Public Use
  Company Number: BR-ABBOTT-09P-020-0567008-00

PATIENT
  Sex: Male
  Weight: 56 kg

DRUGS (3)
  1. HUMIRA [Suspect]
     Indication: PSORIATIC ARTHROPATHY
     Route: 058
     Dates: start: 20080301, end: 20081201
  2. DICLOFENAC SODIUM [Concomitant]
     Indication: ARTHRALGIA
  3. IBUPROFEN [Concomitant]
     Indication: ARTHRALGIA
     Dates: start: 20090301

REACTIONS (6)
  - FOOT DEFORMITY [None]
  - HEADACHE [None]
  - PAIN [None]
  - PSORIASIS [None]
  - PSORIATIC ARTHROPATHY [None]
  - PYREXIA [None]
